FAERS Safety Report 26203226 (Version 1)
Quarter: 2025Q4

REPORT INFORMATION
  Report Type: Spontaneous
  Country: US (occurrence: VE)
  Receive Date: 20251226
  Receipt Date: 20251226
  Transmission Date: 20260118
  Serious: No
  Sender: MERCK SHARP & DOHME LLC
  Company Number: VE-009507513-2356565

PATIENT
  Age: 23 Year
  Sex: Male

DRUGS (1)
  1. IVERMECTIN [Suspect]
     Active Substance: IVERMECTIN
     Indication: Brucellosis

REACTIONS (1)
  - Product use in unapproved indication [Unknown]
